FAERS Safety Report 22150746 (Version 1)
Quarter: 2023Q1

REPORT INFORMATION
  Report Type: Report from Study
  Country: CN (occurrence: None)
  Receive Date: 20230329
  Receipt Date: 20230329
  Transmission Date: 20230418
  Serious: Yes (Hospitalization)
  Sender: FDA-Public Use
  Company Number: CN-ROCHE-3318249

PATIENT
  Age: 60 Year
  Sex: Female

DRUGS (8)
  1. LENALIDOMIDE [Suspect]
     Active Substance: LENALIDOMIDE
     Indication: Diffuse large B-cell lymphoma
     Route: 065
     Dates: start: 20170301, end: 20170621
  2. RITUXIMAB [Suspect]
     Active Substance: RITUXIMAB
     Indication: Diffuse large B-cell lymphoma
     Dosage: (DAY 1 OF EACH 21-DAY CYCLE)
     Route: 065
     Dates: start: 20170114, end: 20170207
  3. CYCLOPHOSPHAMIDE [Suspect]
     Active Substance: CYCLOPHOSPHAMIDE
     Indication: Diffuse large B-cell lymphoma
     Dosage: (DAY 1 OF EACH 21-DAY CYCLE)
     Route: 065
     Dates: start: 20170301, end: 20170615
  4. DOXORUBICIN [Suspect]
     Active Substance: DOXORUBICIN
     Indication: Diffuse large B-cell lymphoma
     Dosage: (DAY 1 OF EACH 21-DAY CYCLE)
     Route: 065
     Dates: start: 20170301, end: 20170615
  5. VINCRISTINE [Suspect]
     Active Substance: VINCRISTINE
     Indication: Diffuse large B-cell lymphoma
     Dosage: (DAY 1 OF EACH 21-DAY CYCLE)
     Route: 065
     Dates: start: 20170301, end: 20170615
  6. PREDNISONE [Suspect]
     Active Substance: PREDNISONE
     Indication: Diffuse large B-cell lymphoma
     Dosage: (ONCE DAILY ON DAYS 1 - 5 OF EACH 21-DAY)
     Route: 065
     Dates: start: 20170301, end: 20170615
  7. FILGRASTIM [Concomitant]
     Active Substance: FILGRASTIM
     Indication: Diffuse large B-cell lymphoma
  8. THROMBOPOIETIN [Concomitant]
     Active Substance: THROMBOPOIETIN
     Indication: Diffuse large B-cell lymphoma

REACTIONS (3)
  - Pyrexia [Recovered/Resolved]
  - Interstitial lung disease [Recovered/Resolved]
  - Urinary tract infection [Recovered/Resolved]

NARRATIVE: CASE EVENT DATE: 20170412
